FAERS Safety Report 9104098 (Version 2)
Quarter: 2013Q1

REPORT INFORMATION
  Report Type: Spontaneous
  Country: BR (occurrence: BR)
  Receive Date: 20130219
  Receipt Date: 20130319
  Transmission Date: 20140127
  Serious: Yes (Hospitalization, Other)
  Sender: FDA-Public Use
  Company Number: PHHY2012BR018094

PATIENT
  Sex: Female
  Weight: 48 kg

DRUGS (6)
  1. EXELON PATCH [Suspect]
     Indication: DEMENTIA ALZHEIMER^S TYPE
     Dosage: 4.6 MG, DAILY
     Route: 062
  2. EXELON PATCH [Suspect]
     Dosage: 9.5 MG, DAILY
     Route: 062
  3. EXELON PATCH [Suspect]
     Dosage: 13.3 MG, DAILY
     Route: 062
     Dates: start: 201202
  4. OSCAL D [Concomitant]
     Indication: BONE DISORDER
     Dosage: 1 DF, DAILY
     Route: 048
  5. FRESH TEARS [Concomitant]
     Indication: DRY EYE
     Dosage: 1 DRP, IN EACH EYE, DAILY
  6. CITAR [Concomitant]
     Indication: DEMENTIA ALZHEIMER^S TYPE
     Dosage: 1 DF, DAILY
     Route: 048

REACTIONS (10)
  - Chondropathy [Recovered/Resolved]
  - Arthralgia [Recovered/Resolved]
  - Osteoporosis [Not Recovered/Not Resolved]
  - Eating disorder [Recovered/Resolved]
  - Hallucination [Unknown]
  - Malaise [Unknown]
  - Vomiting [Unknown]
  - Application site erythema [Not Recovered/Not Resolved]
  - Application site irritation [Not Recovered/Not Resolved]
  - Application site pruritus [Not Recovered/Not Resolved]
